FAERS Safety Report 8132678-3 (Version None)
Quarter: 2012Q1

REPORT INFORMATION
  Report Type: 
  Country: None (occurrence: None)
  Receive Date: 20120213
  Receipt Date: 20120206
  Transmission Date: 20120608
  Serious: Yes (Other)
  Sender: FDA-Public Use
  Company Number: DE-GLAXOSMITHKLINE-D0073697A

PATIENT
  Sex: Female

DRUGS (1)
  1. FLUTICASONE FUROATE [Suspect]
     Dosage: 1PUFF PER DAY
     Route: 045

REACTIONS (2)
  - CATARACT [None]
  - LENTICULAR OPACITIES [None]
